FAERS Safety Report 22367211 (Version 2)
Quarter: 2024Q1

REPORT INFORMATION
  Report Type: Report from Study
  Country: ES (occurrence: ES)
  Receive Date: 20230525
  Receipt Date: 20240110
  Transmission Date: 20240410
  Serious: Yes (Death, Hospitalization, Other)
  Sender: FDA-Public Use
  Company Number: ES-ROCHE-3010240

PATIENT
  Age: 72 Year
  Sex: Male
  Weight: 103.5 kg

DRUGS (31)
  1. CARBOPLATIN [Suspect]
     Active Substance: CARBOPLATIN
     Indication: Small cell lung cancer extensive stage
     Dosage: 500 MG
     Route: 065
     Dates: start: 20211025
  2. CARBOPLATIN [Suspect]
     Active Substance: CARBOPLATIN
     Dosage: 740 MG
     Route: 065
     Dates: start: 20210920
  3. ETOPOSIDE [Suspect]
     Active Substance: ETOPOSIDE
     Indication: Small cell lung cancer extensive stage
     Dosage: 170 MG
     Route: 048
     Dates: start: 20211025
  4. ETOPOSIDE [Suspect]
     Active Substance: ETOPOSIDE
     Dosage: 220 MG
     Route: 042
     Dates: start: 20210920
  5. ATEZOLIZUMAB [Suspect]
     Active Substance: ATEZOLIZUMAB
     Indication: Small cell lung cancer extensive stage
     Dosage: 1200 MG
     Route: 042
     Dates: start: 20211025
  6. ATEZOLIZUMAB [Suspect]
     Active Substance: ATEZOLIZUMAB
     Dosage: 1200 MG
     Route: 042
     Dates: start: 20210920
  7. ATEZOLIZUMAB [Suspect]
     Active Substance: ATEZOLIZUMAB
     Dosage: 1200 MG
     Route: 042
     Dates: start: 20220504
  8. OMEPRAZOLE [Concomitant]
     Active Substance: OMEPRAZOLE
     Indication: Prophylaxis
     Dosage: UNK, 1X/DAY
  9. FORMOTEROL [Concomitant]
     Active Substance: FORMOTEROL
     Dosage: UNK (0.5 DAY)
  10. FUROSEMIDE [Concomitant]
     Active Substance: FUROSEMIDE
     Indication: Prophylaxis
     Dosage: UNK
     Dates: start: 20220302
  11. FUROSEMIDE [Concomitant]
     Active Substance: FUROSEMIDE
     Dosage: UNK
     Dates: end: 20220302
  12. FUROSEMIDE [Concomitant]
     Active Substance: FUROSEMIDE
     Dosage: UNK, 1X/DAY
     Dates: start: 20220303
  13. IBUPROFEN [Concomitant]
     Active Substance: IBUPROFEN
     Indication: Prophylaxis
     Dosage: UNK
     Dates: start: 20211112, end: 20211228
  14. IBUPROFEN [Concomitant]
     Active Substance: IBUPROFEN
     Dosage: UNK
     Dates: start: 20220414
  15. DEXTROMETHORPHAN [Concomitant]
     Active Substance: DEXTROMETHORPHAN
     Dosage: UNK, 1X/DAY
     Dates: start: 20211229
  16. ACETAMINOPHEN [Concomitant]
     Active Substance: ACETAMINOPHEN
     Indication: Prophylaxis
     Dosage: UNK
     Dates: start: 20211112, end: 20211228
  17. ACETAMINOPHEN [Concomitant]
     Active Substance: ACETAMINOPHEN
     Dosage: UNK
     Dates: start: 20220323
  18. METHYLPREDNISOLONE [Concomitant]
     Active Substance: METHYLPREDNISOLONE
     Indication: Prophylaxis
     Dosage: UNK
     Dates: start: 20211228, end: 20211228
  19. ALBUTEROL [Concomitant]
     Active Substance: ALBUTEROL
     Dosage: UNK (0.33 DAY)
  20. IPRATROPIUM [Concomitant]
     Active Substance: IPRATROPIUM
     Dosage: UNK (0.25 DAY)
  21. LORAZEPAM [Concomitant]
     Active Substance: LORAZEPAM
     Indication: Prophylaxis
     Dosage: UNK, 1X/DAY
  22. TIOTROPIUM [Concomitant]
     Active Substance: TIOTROPIUM
     Indication: Prophylaxis
     Dosage: UNK, 1X/DAY
  23. OLANZAPINE [Concomitant]
     Active Substance: OLANZAPINE
     Indication: Prophylaxis
     Dosage: UNK, 1X/DAY
     Dates: start: 20211229
  24. MORPHINE [Concomitant]
     Active Substance: MORPHINE
     Indication: Prophylaxis
     Dosage: 0.5  DAY
     Dates: start: 20220302
  25. ADVENTAN [Concomitant]
     Dosage: UNK
     Dates: start: 20220323
  26. LEVOTHYROXINE [Concomitant]
     Active Substance: LEVOTHYROXINE
     Dosage: UNK
     Dates: start: 20220419
  27. LEVOFLOXACIN [Concomitant]
     Active Substance: LEVOFLOXACIN
     Dosage: UNK
     Dates: start: 20220504, end: 20220510
  28. FILGRASTIM [Concomitant]
     Active Substance: FILGRASTIM
     Indication: Prophylaxis
     Dosage: UNK, 1X/DAY
     Dates: start: 20211028, end: 20211101
  29. INDOMETHACIN [Concomitant]
     Active Substance: INDOMETHACIN
     Dosage: UNK (0.33 DAY)
     Dates: start: 20220119
  30. INDOMETHACIN [Concomitant]
     Active Substance: INDOMETHACIN
     Dosage: UNK (0.33 DAY)
     Dates: start: 20220302
  31. LURBINECTEDIN [Concomitant]
     Active Substance: LURBINECTEDIN
     Dosage: UNK
     Dates: start: 20220603, end: 20220915

REACTIONS (12)
  - Pneumonia pseudomonal [Fatal]
  - Chronic obstructive pulmonary disease [Fatal]
  - Febrile neutropenia [Recovered/Resolved]
  - Asthenia [Recovered/Resolved]
  - Alopecia [Recovered/Resolved]
  - Cough [Not Recovered/Not Resolved]
  - Asthenia [Not Recovered/Not Resolved]
  - Mucosal inflammation [Recovered/Resolved]
  - Rash maculo-papular [Recovered/Resolved]
  - Dyspnoea [Not Recovered/Not Resolved]
  - Pyrexia [Recovered/Resolved]
  - Mucosal inflammation [Not Recovered/Not Resolved]

NARRATIVE: CASE EVENT DATE: 20210929
